FAERS Safety Report 24755487 (Version 6)
Quarter: 2025Q1

REPORT INFORMATION
  Report Type: Spontaneous
  Country: US (occurrence: US)
  Receive Date: 20241219
  Receipt Date: 20250221
  Transmission Date: 20250408
  Serious: No
  Sender: PFIZER
  Company Number: US-PFIZER INC-202400326002

PATIENT
  Age: 10 Year
  Sex: Male

DRUGS (2)
  1. GENOTROPIN [Suspect]
     Active Substance: SOMATROPIN
     Indication: Growth hormone deficiency
     Dosage: 1.4 MG, DAILY
     Dates: start: 202403
  2. GENOTROPIN [Suspect]
     Active Substance: SOMATROPIN
     Dosage: 0.9 MG, DAILY

REACTIONS (4)
  - Drug dose omission by device [Unknown]
  - Device issue [Unknown]
  - Poor quality device used [Unknown]
  - Wrong technique in device usage process [Unknown]

NARRATIVE: CASE EVENT DATE: 20250115
